FAERS Safety Report 25823765 (Version 1)
Quarter: 2025Q3

REPORT INFORMATION
  Report Type: Spontaneous
  Country: US (occurrence: None)
  Receive Date: 20250918
  Receipt Date: 20250918
  Transmission Date: 20251021
  Serious: Yes (Other)
  Sender: FDA-CTU
  Company Number: None

PATIENT
  Age: 30 Year
  Sex: Female

DRUGS (3)
  1. CYANOCOBALAMIN\TOPIRAMATE [Suspect]
     Active Substance: CYANOCOBALAMIN\TOPIRAMATE
     Indication: Weight decreased
     Dosage: FREQUENCY : DAILY;?
     Route: 048
     Dates: start: 20250702, end: 20250728
  2. METFORMIN [Suspect]
     Active Substance: METFORMIN HYDROCHLORIDE
     Dates: start: 20250723, end: 20250728
  3. BUPROPION [Suspect]
     Active Substance: BUPROPION
     Dates: start: 20250702, end: 20250727

REACTIONS (6)
  - Peripheral swelling [None]
  - Muscle tightness [None]
  - Pruritus [None]
  - Erythema [None]
  - Joint swelling [None]
  - Therapy cessation [None]

NARRATIVE: CASE EVENT DATE: 20250728
